FAERS Safety Report 17047062 (Version 1)
Quarter: 2019Q4

REPORT INFORMATION
  Report Type: Spontaneous
  Country: US (occurrence: US)
  Receive Date: 20191119
  Receipt Date: 20191119
  Transmission Date: 20200122
  Serious: Yes (Hospitalization, Other)
  Sender: FDA-Public Use
  Company Number: US-ALVOGEN-2019-ALVOGEN-101934

PATIENT
  Age: 15 Year
  Sex: Female
  Weight: 67.2 kg

DRUGS (1)
  1. BUPROPION. [Suspect]
     Active Substance: BUPROPION
     Indication: PRODUCT USED FOR UNKNOWN INDICATION

REACTIONS (12)
  - Somnolence [Unknown]
  - Transaminases increased [Unknown]
  - Metabolic acidosis [Unknown]
  - Sinus tachycardia [Unknown]
  - Electrocardiogram QT prolonged [Unknown]
  - Myoclonus [Recovered/Resolved]
  - Respiratory alkalosis [Unknown]
  - Vomiting [Unknown]
  - Electrocardiogram QRS complex prolonged [Unknown]
  - Coma scale abnormal [Unknown]
  - Generalised tonic-clonic seizure [Recovered/Resolved]
  - Intentional overdose [Unknown]
